FAERS Safety Report 16467501 (Version 1)
Quarter: 2019Q2

REPORT INFORMATION
  Report Type: Spontaneous
  Country: US (occurrence: US)
  Receive Date: 20190624
  Receipt Date: 20190624
  Transmission Date: 20190711
  Serious: Yes (Hospitalization)
  Sender: FDA-Public Use
  Company Number: US-PHARMALEX-2069502

PATIENT
  Age: 79 Year
  Sex: Female

DRUGS (4)
  1. EXPAREL [Suspect]
     Active Substance: BUPIVACAINE
     Indication: NERVE BLOCK
  2. APIXABAN [Concomitant]
     Active Substance: APIXABAN
  3. BUPIVACAINE. [Suspect]
     Active Substance: BUPIVACAINE
  4. HEPARIN [Concomitant]
     Active Substance: HEPARIN SODIUM

REACTIONS (1)
  - Atrial fibrillation [Unknown]
